FAERS Safety Report 9456296 (Version 2)
Quarter: 2013Q3

REPORT INFORMATION
  Report Type: Spontaneous
  Country: SE (occurrence: SE)
  Receive Date: 20130813
  Receipt Date: 20130910
  Transmission Date: 20140515
  Serious: Yes (Other)
  Sender: FDA-Public Use
  Company Number: SE-OTSUKA-US-2013-11505

PATIENT
  Sex: 0

DRUGS (4)
  1. BUSULFEX [Suspect]
     Indication: STEM CELL TRANSPLANT
     Dosage: 4 MG/KG, QD
     Route: 048
  2. CYCLOSPORINE [Concomitant]
     Indication: PRODUCT USED FOR UNKNOWN INDICATION
  3. METHOTREXATE [Concomitant]
     Indication: PRODUCT USED FOR UNKNOWN INDICATION
  4. ALLOPURINOL [Concomitant]
     Indication: PRODUCT USED FOR UNKNOWN INDICATION

REACTIONS (10)
  - Mucosal inflammation [Unknown]
  - Cystitis haemorrhagic [Unknown]
  - Cystitis [Unknown]
  - Bacteraemia [Unknown]
  - Herpes simplex [Unknown]
  - Cytomegalovirus infection [Unknown]
  - Acute graft versus host disease [None]
  - Chronic graft versus host disease [Unknown]
  - Transplant failure [Unknown]
  - Malignant neoplasm progression [Unknown]
